FAERS Safety Report 17279667 (Version 1)
Quarter: 2020Q1

REPORT INFORMATION
  Report Type: Spontaneous
  Country: US (occurrence: US)
  Receive Date: 20200116
  Receipt Date: 20200116
  Transmission Date: 20200409
  Serious: No
  Sender: FDA-Public Use
  Company Number: US-ELI_LILLY_AND_COMPANY-US201912014247

PATIENT
  Age: 89 Year
  Sex: Female

DRUGS (3)
  1. NOVOLOG [Concomitant]
     Active Substance: INSULIN ASPART
     Indication: DIABETES MELLITUS
     Dosage: UNK, UNKNOWN
  2. BASAGLAR [Suspect]
     Active Substance: INSULIN GLARGINE
     Dosage: 24 INTERNATIONAL UNIT, UNKNOWN
     Route: 058
     Dates: start: 2018
  3. BASAGLAR [Suspect]
     Active Substance: INSULIN GLARGINE
     Indication: DIABETES MELLITUS
     Dosage: 24 INTERNATIONAL UNIT, UNKNOWN
     Route: 058
     Dates: start: 2018

REACTIONS (1)
  - Nasopharyngitis [Recovering/Resolving]

NARRATIVE: CASE EVENT DATE: 20191227
